FAERS Safety Report 6924554-6 (Version None)
Quarter: 2010Q3

REPORT INFORMATION
  Report Type: 
  Country: None (occurrence: None)
  Receive Date: 20100816
  Receipt Date: 20100811
  Transmission Date: 20110219
  Serious: Yes (Death, Hospitalization)
  Sender: FDA-Public Use
  Company Number: PHHY2009JP45586

PATIENT
  Sex: Female
  Weight: 42 kg

DRUGS (4)
  1. DIOVAN [Suspect]
     Indication: HYPERTENSION
     Dosage: 120 MG IN 2 DIVIDED DOSE DAILY
     Route: 048
     Dates: start: 20080717
  2. DIOVAN [Suspect]
     Dosage: 160 MG IN 2 DIVIDED DOSE DAILY
     Route: 048
  3. PREDNISOLONE [Concomitant]
     Dosage: 3 MG, UNK
     Route: 048
  4. BUFERIN [Concomitant]
     Dosage: 81 MG, UNK
     Route: 048

REACTIONS (1)
  - ACUTE MYOCARDIAL INFARCTION [None]
